FAERS Safety Report 19978706 (Version 3)
Quarter: 2021Q4

REPORT INFORMATION
  Report Type: Report from Study
  Country: US (occurrence: US)
  Receive Date: 20211020
  Receipt Date: 20211121
  Transmission Date: 20220303
  Serious: Yes (Life-Threatening, Hospitalization)
  Sender: FDA-Public Use
  Company Number: US-009507513-2110USA004293

PATIENT
  Age: 45 Year
  Sex: Female
  Weight: 118.7 kg

DRUGS (5)
  1. PEMBROLIZUMAB [Suspect]
     Active Substance: PEMBROLIZUMAB
     Indication: Endometrial adenocarcinoma
     Dosage: 200 MILLIGRAM, Q3W
     Route: 042
     Dates: start: 20210907, end: 20210907
  2. TAXOL [Suspect]
     Active Substance: PACLITAXEL
     Indication: Endometrial adenocarcinoma
     Dosage: 175 MILLIGRAM/SQ. METER
     Route: 042
     Dates: start: 20210907, end: 20210907
  3. CARBOPLATIN [Suspect]
     Active Substance: CARBOPLATIN
     Indication: Endometrial adenocarcinoma
     Dosage: AUC 5
     Route: 042
     Dates: start: 20210907, end: 20210907
  4. METOPROLOL [Concomitant]
     Active Substance: METOPROLOL
     Indication: Ventricular tachycardia
     Dosage: 25 MILLIGRAM, BID
  5. ELIQUIS [Concomitant]
     Active Substance: APIXABAN
     Indication: Pulmonary embolism
     Dosage: 5 MILLIGRAM, BID

REACTIONS (2)
  - Hypokalaemia [Recovered/Resolved]
  - Supraventricular tachycardia [Recovered/Resolved]

NARRATIVE: CASE EVENT DATE: 20210916
